FAERS Safety Report 21888624 (Version 1)
Quarter: 2023Q1

REPORT INFORMATION
  Report Type: Spontaneous
  Country: IT (occurrence: IT)
  Receive Date: 20230120
  Receipt Date: 20230120
  Transmission Date: 20230417
  Serious: Yes (Hospitalization)
  Sender: FDA-Public Use
  Company Number: None

PATIENT
  Age: 83 Year
  Sex: Male

DRUGS (1)
  1. ASPIRIN [Suspect]
     Active Substance: ASPIRIN
     Indication: Atherosclerosis prophylaxis
     Dosage: 100 MG, Q24H
     Route: 048
     Dates: end: 20230107

REACTIONS (2)
  - Cerebral haemorrhage [Recovering/Resolving]
  - Gaze palsy [Recovering/Resolving]

NARRATIVE: CASE EVENT DATE: 20230107
